FAERS Safety Report 23366834 (Version 1)
Quarter: 2024Q1

REPORT INFORMATION
  Report Type: Spontaneous
  Country: IT (occurrence: IT)
  Receive Date: 20240104
  Receipt Date: 20240104
  Transmission Date: 20240410
  Serious: Yes (Other)
  Sender: FDA-Public Use
  Company Number: None

PATIENT
  Age: 47 Year
  Sex: Male

DRUGS (1)
  1. AZITHROMYCIN [Suspect]
     Active Substance: AZITHROMYCIN
     Indication: Pharyngitis
     Dosage: 500 MG
     Route: 048
     Dates: start: 20231104, end: 20231104

REACTIONS (2)
  - Rash [Recovering/Resolving]
  - Suffocation feeling [Recovering/Resolving]

NARRATIVE: CASE EVENT DATE: 20231104
